FAERS Safety Report 11498314 (Version 1)
Quarter: 2015Q3

REPORT INFORMATION
  Report Type: Spontaneous
  Country: US (occurrence: US)
  Receive Date: 20150911
  Receipt Date: 20150911
  Transmission Date: 20151125
  Serious: Yes (Hospitalization, Other)
  Sender: FDA-Public Use
  Company Number: US-DSJP-DSU-2015-118060

PATIENT

DRUGS (4)
  1. BENICAR HCT [Suspect]
     Active Substance: HYDROCHLOROTHIAZIDE\OLMESARTAN MEDOXOMIL
     Indication: FLUID RETENTION
     Dosage: 20/12.5MG, QD
     Dates: start: 2006, end: 201405
  2. BENICAR [Suspect]
     Active Substance: OLMESARTAN MEDOXOMIL
     Indication: FLUID RETENTION
  3. BENICAR HCT [Suspect]
     Active Substance: HYDROCHLOROTHIAZIDE\OLMESARTAN MEDOXOMIL
     Indication: HYPERTENSION
     Dosage: 40/25 MG, 1/2 TABLET QD
     Dates: start: 2006, end: 201405
  4. BENICAR [Suspect]
     Active Substance: OLMESARTAN MEDOXOMIL
     Indication: BLOOD PRESSURE MEASUREMENT
     Dosage: 20 MG, QD
     Route: 048
     Dates: start: 2006, end: 201405

REACTIONS (17)
  - Haematochezia [Unknown]
  - Gluten sensitivity [Unknown]
  - Depression [Not Recovered/Not Resolved]
  - Vomiting [Unknown]
  - Coeliac disease [Unknown]
  - Inflammatory bowel disease [Unknown]
  - Malabsorption [Not Recovered/Not Resolved]
  - Small intestinal obstruction [Unknown]
  - Haemorrhoids [Unknown]
  - Acute kidney injury [Unknown]
  - Nausea [Unknown]
  - Crohn^s disease [Unknown]
  - Gastrointestinal haemorrhage [Unknown]
  - Hypokalaemia [Unknown]
  - Abdominal pain upper [Not Recovered/Not Resolved]
  - Enteritis [Unknown]
  - Dehydration [Unknown]

NARRATIVE: CASE EVENT DATE: 201211
